FAERS Safety Report 7361261-2 (Version None)
Quarter: 2011Q1

REPORT INFORMATION
  Report Type: 
  Country: None (occurrence: None)
  Receive Date: 20110318
  Receipt Date: 20110316
  Transmission Date: 20110831
  Serious: Yes (Hospitalization)
  Sender: FDA-Public Use
  Company Number: FR-SANOFI-AVENTIS-2011SA016097

PATIENT
  Age: 76 Year
  Sex: Female

DRUGS (5)
  1. LANTUS [Suspect]
     Route: 051
     Dates: start: 20030101
  2. VERAPAMIL [Concomitant]
     Route: 065
  3. LOSARTAN POTASSIUM [Concomitant]
     Route: 065
  4. PRAVASTATIN [Concomitant]
     Route: 065
  5. NOVORAPID [Concomitant]
     Route: 065

REACTIONS (1)
  - PYREXIA [None]
